FAERS Safety Report 26146905 (Version 1)
Quarter: 2025Q4

REPORT INFORMATION
  Report Type: Spontaneous
  Country: US (occurrence: US)
  Receive Date: 20251211
  Receipt Date: 20251211
  Transmission Date: 20260117
  Serious: No
  Sender: NOVARTIS
  Company Number: US-002147023-NVSC2025US189879

PATIENT
  Age: 51 Year
  Sex: Male
  Weight: 97.52 kg

DRUGS (1)
  1. IMATINIB [Suspect]
     Active Substance: IMATINIB
     Indication: Neoadjuvant therapy
     Dosage: 400 MG, QD
     Route: 065
     Dates: start: 20240517, end: 20241014

REACTIONS (1)
  - Conjunctival haemorrhage [Recovered/Resolved with Sequelae]

NARRATIVE: CASE EVENT DATE: 20240714
